FAERS Safety Report 15915533 (Version 1)
Quarter: 2019Q1

REPORT INFORMATION
  Report Type: Spontaneous
  Country: US (occurrence: US)
  Receive Date: 20190112
  Receipt Date: 20190112
  Transmission Date: 20190417
  Serious: No
  Sender: FDA-Public Use
  Company Number: None

PATIENT
  Age: 3 Year
  Sex: Male

DRUGS (1)
  1. IRINOTECAN INJ 40MG/2ML [Suspect]
     Active Substance: IRINOTECAN
     Dates: start: 20190111

REACTIONS (2)
  - Incorrect route of product administration [None]
  - Off label use [None]

NARRATIVE: CASE EVENT DATE: 20190111
